FAERS Safety Report 6502707-9 (Version None)
Quarter: 2009Q4

REPORT INFORMATION
  Report Type: 
  Country: None (occurrence: None)
  Receive Date: 20091217
  Receipt Date: 20091207
  Transmission Date: 20100525
  Serious: Yes (Other)
  Sender: FDA-Public Use
  Company Number: US-BRISTOL-MYERS SQUIBB COMPANY-14840219

PATIENT
  Age: 30 Year
  Sex: Female

DRUGS (1)
  1. AMOXICILLIN [Suspect]
     Indication: STREPTOCOCCAL INFECTION

REACTIONS (4)
  - ANAPHYLACTIC REACTION [None]
  - CAESAREAN SECTION [None]
  - LIVE BIRTH [None]
  - PREGNANCY [None]
